FAERS Safety Report 4632878-0 (Version None)
Quarter: 2005Q2

REPORT INFORMATION
  Report Type: 
  Country: None (occurrence: None)
  Receive Date: 20050325
  Receipt Date: 20050105
  Transmission Date: 20051028
  Serious: No
  Sender: FDA-Public Use
  Company Number: USA040155863

PATIENT
  Age: 72 Year
  Sex: Female
  Weight: 47 kg

DRUGS (5)
  1. FORTEO [Suspect]
     Indication: OSTEOPOROSIS
     Dosage: 20 UG DAY
     Dates: start: 20031228
  2. VIT C TAB [Concomitant]
  3. VITAMIN D [Concomitant]
  4. CALCIUM GLUCONATE [Concomitant]
  5. TUMS (CALCIUM CARBONATE) [Concomitant]

REACTIONS (10)
  - BODY HEIGHT DECREASED [None]
  - CROHN'S DISEASE [None]
  - DIARRHOEA [None]
  - DIZZINESS [None]
  - HEADACHE [None]
  - HEPATIC ENZYME INCREASED [None]
  - LIBIDO INCREASED [None]
  - LOCALISED INFECTION [None]
  - RASH [None]
  - RHINORRHOEA [None]
